FAERS Safety Report 17728144 (Version 1)
Quarter: 2020Q2

REPORT INFORMATION
  Report Type: Report from Study
  Country: KR (occurrence: KR)
  Receive Date: 20200430
  Receipt Date: 20200430
  Transmission Date: 20200714
  Serious: Yes (Hospitalization)
  Sender: FDA-Public Use
  Company Number: KR-ASTELLAS-2019US044070

PATIENT
  Age: 70 Year
  Sex: Male

DRUGS (5)
  1. PHAZYME [SIMETICONE] [Concomitant]
     Indication: DYSPEPSIA
     Route: 048
     Dates: start: 20181213
  2. LYRICA [Concomitant]
     Active Substance: PREGABALIN
     Indication: DIABETIC NEUROPATHY
     Route: 048
     Dates: start: 20191014
  3. ASG-22CE [Suspect]
     Active Substance: ENFORTUMAB VEDOTIN
     Indication: MALIGNANT NEOPLASM OF RENAL PELVIS
     Dosage: 1.25 MG/KG, CYCLIC (D1, D8, D15 DURING 28 DAYS)
     Route: 042
     Dates: start: 20190902
  4. XYZAL [Concomitant]
     Active Substance: LEVOCETIRIZINE DIHYDROCHLORIDE
     Indication: PRURITUS
     Route: 048
     Dates: start: 20190922
  5. NUCYNTA [Concomitant]
     Active Substance: TAPENTADOL HYDROCHLORIDE
     Indication: PAIN IN EXTREMITY
     Route: 048
     Dates: start: 20191014

REACTIONS (2)
  - Rash vesicular [Recovering/Resolving]
  - Rash erythematous [Recovering/Resolving]

NARRATIVE: CASE EVENT DATE: 20191101
